FAERS Safety Report 8812735 (Version 1)
Quarter: 2012Q4

REPORT INFORMATION
  Report Type: 
  Country: US (occurrence: US)
  Receive Date: 20120927
  Receipt Date: 20120927
  Transmission Date: 20130627
  Serious: Yes (Death, Other)
  Sender: FDA-Public Use
  Company Number: US-ROCHE-1126157

PATIENT
  Sex: Female

DRUGS (6)
  1. AVASTIN [Suspect]
     Indication: VULVAL CANCER
     Route: 065
  2. AVASTIN [Suspect]
     Indication: BREAST CANCER FEMALE
  3. AVASTIN [Suspect]
     Indication: BONE NEOPLASM MALIGNANT
  4. HERCEPTIN [Suspect]
     Indication: BONE NEOPLASM MALIGNANT
     Route: 065
  5. HERCEPTIN [Suspect]
     Indication: VULVAL CANCER
  6. HERCEPTIN [Suspect]
     Indication: BREAST CANCER FEMALE

REACTIONS (2)
  - Death [Fatal]
  - Metastases to bladder [Unknown]
